FAERS Safety Report 8340300-6 (Version None)
Quarter: 2012Q2

REPORT INFORMATION
  Report Type: 
  Country: None (occurrence: None)
  Receive Date: 20120507
  Receipt Date: 20120507
  Transmission Date: 20120825
  Serious: Yes (Life-Threatening, Hospitalization)
  Sender: FDA-Public Use
  Company Number: None

PATIENT
  Age: 12 Year
  Sex: Female
  Weight: 58.967 kg

DRUGS (1)
  1. LEVETIRACETAM [Suspect]
     Indication: CONVULSION
     Dosage: |DOSAGETEXT: 5 ML||STRENGTH: SOLUTION||FREQ: TWICE DAILY|
     Dates: start: 20110820, end: 20120413

REACTIONS (5)
  - MENTAL IMPAIRMENT [None]
  - SOMNOLENCE [None]
  - UNRESPONSIVE TO STIMULI [None]
  - CATATONIA [None]
  - DEPRESSION [None]
